FAERS Safety Report 7939874-6 (Version None)
Quarter: 2011Q4

REPORT INFORMATION
  Report Type: 
  Country: None (occurrence: None)
  Receive Date: 20111125
  Receipt Date: 20111117
  Transmission Date: 20120403
  Serious: Yes (Life-Threatening, Other)
  Sender: FDA-Public Use
  Company Number: JP-ABBOTT-11P-087-0714596-00

PATIENT
  Sex: Male
  Weight: 37.5 kg

DRUGS (14)
  1. HUMIRA [Suspect]
     Dates: start: 20101209, end: 20101209
  2. OMEPRAZOLE [Concomitant]
     Indication: PRODUCT USED FOR UNKNOWN INDICATION
     Route: 048
  3. TAMSULOSIN HYDROCHLORIDE [Concomitant]
     Indication: PRODUCT USED FOR UNKNOWN INDICATION
  4. HUMIRA [Suspect]
     Indication: CROHN'S DISEASE
     Route: 058
     Dates: start: 20101125, end: 20101125
  5. TPN [Concomitant]
     Indication: PRODUCT USED FOR UNKNOWN INDICATION
     Route: 048
     Dates: start: 20110112
  6. MAGNESIUM OXIDE [Concomitant]
     Indication: PRODUCT USED FOR UNKNOWN INDICATION
     Route: 048
  7. SODIUM PICOSULFATE HYDRATE [Concomitant]
     Indication: PRODUCT USED FOR UNKNOWN INDICATION
     Route: 048
  8. LANSOPRAZOLE [Concomitant]
     Indication: PRODUCT USED FOR UNKNOWN INDICATION
     Dates: start: 20110319
  9. HUMIRA [Suspect]
     Dates: start: 20101224, end: 20110304
  10. ENTERAL NUTRITION [Concomitant]
     Indication: CROHN'S DISEASE
     Dates: start: 20090702
  11. AZATHIOPRINE [Concomitant]
     Indication: CROHN'S DISEASE
     Dates: start: 20100916, end: 20110307
  12. CETIRIZINE HCL [Concomitant]
     Indication: PRODUCT USED FOR UNKNOWN INDICATION
     Route: 048
  13. CHLORPHENIRAMINE MALEATE [Concomitant]
     Indication: PRODUCT USED FOR UNKNOWN INDICATION
     Route: 048
  14. BIFIDOBACTERIUM [Concomitant]
     Indication: PRODUCT USED FOR UNKNOWN INDICATION

REACTIONS (10)
  - PRURITUS [None]
  - DIARRHOEA [None]
  - SCRATCH [None]
  - STAPHYLOCOCCAL SEPSIS [None]
  - DEVICE RELATED INFECTION [None]
  - HEPATIC STEATOSIS [None]
  - SEPTIC SHOCK [None]
  - SEPSIS [None]
  - LIVER DISORDER [None]
  - ECZEMA [None]
